FAERS Safety Report 6907066-5 (Version None)
Quarter: 2010Q3

REPORT INFORMATION
  Report Type: 
  Country: None (occurrence: None)
  Receive Date: 20100804
  Receipt Date: 20080818
  Transmission Date: 20110219
  Serious: No
  Sender: FDA-Public Use
  Company Number: US-PFIZER INC-2008069076

PATIENT
  Sex: Male

DRUGS (3)
  1. SELZENTRY [Interacting]
     Indication: HIV TEST POSITIVE
  2. ZYPREXA [Interacting]
  3. LEXAPRO [Suspect]

REACTIONS (1)
  - DRUG INTERACTION [None]
